FAERS Safety Report 18932738 (Version 1)
Quarter: 2021Q1

REPORT INFORMATION
  Report Type: Spontaneous
  Country: US (occurrence: US)
  Receive Date: 20210223
  Receipt Date: 20210223
  Transmission Date: 20210420
  Serious: Yes (Other)
  Sender: FDA-Public Use
  Company Number: None

PATIENT
  Age: 36 Year
  Sex: Female
  Weight: 82.8 kg

DRUGS (9)
  1. AMARYL [Concomitant]
     Active Substance: GLIMEPIRIDE
  2. TECFIDERA [Suspect]
     Active Substance: DIMETHYL FUMARATE
     Indication: MULTIPLE SCLEROSIS
     Route: 048
     Dates: start: 20190101, end: 20200104
  3. LEVOTHYROXINE. [Concomitant]
     Active Substance: LEVOTHYROXINE
  4. TRULICITY [Concomitant]
     Active Substance: DULAGLUTIDE
  5. MAVENCLAD [Suspect]
     Active Substance: CLADRIBINE
     Indication: MULTIPLE SCLEROSIS
     Dosage: ?          OTHER FREQUENCY:TWICE OVER 5 DAYS;?
     Route: 048
     Dates: start: 20200502, end: 20200531
  6. BENTYL [Concomitant]
     Active Substance: DICYCLOMINE HYDROCHLORIDE
  7. VITAMIN D [Concomitant]
     Active Substance: VITAMIN D NOS
  8. METFORMIN [Concomitant]
     Active Substance: METFORMIN HYDROCHLORIDE
  9. PROCHLORPERAZINE. [Concomitant]
     Active Substance: PROCHLORPERAZINE

REACTIONS (1)
  - Breast cancer [None]

NARRATIVE: CASE EVENT DATE: 20210212
